FAERS Safety Report 21879854 (Version 1)
Quarter: 2023Q1

REPORT INFORMATION
  Report Type: Spontaneous
  Country: US (occurrence: None)
  Receive Date: 20230117
  Receipt Date: 20230117
  Transmission Date: 20230417
  Serious: Yes (Death, Life-Threatening, Hospitalization)
  Sender: FDA-Public Use
  Company Number: None

PATIENT
  Age: 57 Year
  Sex: Female
  Weight: 66.9 kg

DRUGS (15)
  1. PIQRAY [Suspect]
     Active Substance: ALPELISIB
     Indication: Endometrial cancer
     Dosage: FREQUENCY : DAILY;?
     Route: 048
     Dates: start: 20221221, end: 20230111
  2. PIQRAY [Suspect]
     Active Substance: ALPELISIB
     Indication: PIK3CA-activated mutation
  3. ACETAMINOPHEN [Concomitant]
     Active Substance: ACETAMINOPHEN
  4. AMLODIPINE [Concomitant]
     Active Substance: AMLODIPINE BESYLATE
  5. CYANOCOBALAMIN [Concomitant]
     Active Substance: CYANOCOBALAMIN
  6. DIPHENHYDRAMINE [Concomitant]
     Active Substance: DIPHENHYDRAMINE
  7. docosanol cream [Concomitant]
  8. VITAMINS [Concomitant]
     Active Substance: VITAMINS
  9. FLUTICASONE [Concomitant]
     Active Substance: FLUTICASONE
  10. IBUPROFEN [Concomitant]
     Active Substance: IBUPROFEN
  11. LEVOTHYROXINE [Concomitant]
     Active Substance: LEVOTHYROXINE
  12. LORATADINE [Concomitant]
     Active Substance: LORATADINE
  13. METFORMIN [Concomitant]
     Active Substance: METFORMIN HYDROCHLORIDE
  14. prochloperazine [Concomitant]
  15. TRAMADOL [Concomitant]
     Active Substance: TRAMADOL

REACTIONS (7)
  - Chest pain [None]
  - Neck pain [None]
  - Increased tendency to bruise [None]
  - Breast cancer [None]
  - Subcutaneous emphysema [None]
  - Necrotising fasciitis [None]
  - General physical health deterioration [None]

NARRATIVE: CASE EVENT DATE: 20230111
